FAERS Safety Report 4471173-X (Version None)
Quarter: 2004Q4

REPORT INFORMATION
  Report Type: 
  Country: None (occurrence: None)
  Receive Date: 20041006
  Receipt Date: 20040923
  Transmission Date: 20050328
  Serious: Yes (Hospitalization)
  Sender: FDA-Public Use
  Company Number: 2004070486

PATIENT
  Age: 56 Year
  Sex: Male

DRUGS (3)
  1. LIPITOR           (ATORVASTATIN) [Suspect]
     Indication: ILL-DEFINED DISORDER
     Dosage: 80 MG (80 MG, 1 IN 1 D), ORAL
     Route: 048
     Dates: start: 20040913
  2. FLUTICASONE PROPIONATE [Concomitant]
  3. SALBUTAMOL           (SALBUTAMOL) [Concomitant]

REACTIONS (1)
  - FOREIGN BODY TRAUMA [None]
